FAERS Safety Report 17525095 (Version 1)
Quarter: 2020Q1

REPORT INFORMATION
  Report Type: Report from Study
  Country: US (occurrence: US)
  Receive Date: 20200310
  Receipt Date: 20200310
  Transmission Date: 20200409
  Serious: Yes (Hospitalization, Other)
  Sender: FDA-Public Use
  Company Number: US-BAYER-2019-228550

PATIENT
  Age: 64 Year
  Sex: Female

DRUGS (3)
  1. STIVARGA [Suspect]
     Active Substance: REGORAFENIB
     Indication: COLORECTAL CANCER
     Dosage: DAILY DOSE 80 MG FOR 21 DAYS OF 28 DAY CYCLE
     Dates: start: 20200115, end: 20200202
  2. STIVARGA [Suspect]
     Active Substance: REGORAFENIB
     Indication: COLORECTAL CANCER
     Dosage: DAILY DOSE 80 MG FOR 21 DAYS THEN OFF FOR 7 DAYS
     Route: 048
     Dates: start: 20191204, end: 201912
  3. STIVARGA [Suspect]
     Active Substance: REGORAFENIB
     Indication: COLORECTAL CANCER
     Dosage: 120 MG DAILY FOR 21 DAYS OF 28 DAYS
     Route: 048
     Dates: start: 20200203

REACTIONS (13)
  - Off label use [None]
  - Rash [Recovering/Resolving]
  - Metastases to spine [Not Recovered/Not Resolved]
  - Abdominal pain [Not Recovered/Not Resolved]
  - Metastases to liver [Not Recovered/Not Resolved]
  - Bladder cancer [Unknown]
  - Abdominal mass [Not Recovered/Not Resolved]
  - Diarrhoea [Recovering/Resolving]
  - Back pain [Not Recovered/Not Resolved]
  - Neuropathy peripheral [Not Recovered/Not Resolved]
  - Fatigue [Not Recovered/Not Resolved]
  - Pain in extremity [Not Recovered/Not Resolved]
  - Atrial fibrillation [Not Recovered/Not Resolved]

NARRATIVE: CASE EVENT DATE: 20191204
